FAERS Safety Report 8068267-9 (Version None)
Quarter: 2012Q1

REPORT INFORMATION
  Report Type: 
  Country: None (occurrence: None)
  Receive Date: 20120124
  Receipt Date: 20111007
  Transmission Date: 20120608
  Serious: No
  Sender: FDA-Public Use
  Company Number: US-AMGEN-USASP2011052081

PATIENT
  Age: 63 Year
  Sex: Female

DRUGS (9)
  1. RAMIPRIL [Concomitant]
  2. IRON [Concomitant]
  3. PROLIA [Suspect]
     Indication: MULTIPLE SCLEROSIS
  4. MIRALAX [Concomitant]
  5. ALLEGRA [Concomitant]
  6. ZANAFLEX [Concomitant]
  7. BETHANECHOL [Concomitant]
  8. PROLIA [Suspect]
     Indication: OSTEOPENIA
     Dosage: UNK
  9. OXYCONTIN [Concomitant]

REACTIONS (3)
  - TRISMUS [None]
  - PAIN IN EXTREMITY [None]
  - FALL [None]
